FAERS Safety Report 10530385 (Version 1)
Quarter: 2014Q4

REPORT INFORMATION
  Report Type: Spontaneous
  Country: US (occurrence: None)
  Receive Date: 20141020
  Receipt Date: 20141020
  Transmission Date: 20150528
  Serious: Yes (Life-Threatening, Disabling)
  Sender: FDA-Public Use
  Company Number: None

PATIENT
  Age: 57 Year
  Sex: Male
  Weight: 88 kg

DRUGS (1)
  1. VIAGRA [Suspect]
     Active Substance: SILDENAFIL CITRATE
     Indication: ERECTILE DYSFUNCTION
     Dosage: AS NEEDED  TAKEN BY MOUTH
     Route: 048

REACTIONS (5)
  - Metastases to liver [None]
  - Metastases to kidney [None]
  - Malignant melanoma stage IV [None]
  - Metastases to lung [None]
  - Metastases to spine [None]

NARRATIVE: CASE EVENT DATE: 20140201
